FAERS Safety Report 13563325 (Version 1)
Quarter: 2017Q2

REPORT INFORMATION
  Report Type: Spontaneous
  Country: ES (occurrence: ES)
  Receive Date: 20170519
  Receipt Date: 20170519
  Transmission Date: 20170830
  Serious: Yes (Life-Threatening)
  Sender: FDA-Public Use
  Company Number: ES-PFIZER INC-2017140870

PATIENT
  Age: 62 Year
  Sex: Male

DRUGS (12)
  1. MIDAZOLAM [Concomitant]
     Active Substance: MIDAZOLAM HYDROCHLORIDE
     Indication: PREMEDICATION
     Dosage: UNK
  2. BUPIVACAINE. [Concomitant]
     Active Substance: BUPIVACAINE
     Dosage: UNK (WITH ADRENALINE DELIVERED VIA THE EPIDURAL CATHETER)(10 ML IN TOTAL)
     Route: 008
  3. ROCURONIUM BROMIDE. [Suspect]
     Active Substance: ROCURONIUM BROMIDE
     Indication: INDUCTION OF ANAESTHESIA
     Dosage: (CONTINUOUS INFUSION)
     Route: 041
  4. FENTANYL. [Suspect]
     Active Substance: FENTANYL
     Indication: INDUCTION OF ANAESTHESIA
     Dosage: (CONTINUOUS INFUSION)
     Route: 041
  5. CLAVULANIC ACID [Concomitant]
     Active Substance: CLAVULANIC ACID
     Indication: ANTIBIOTIC PROPHYLAXIS
     Dosage: UNK
  6. PROPOFOL. [Suspect]
     Active Substance: PROPOFOL
     Indication: INDUCTION OF ANAESTHESIA
     Dosage: (CONTINUOUS PERFUSION)(CONTINUOUS INFUSION)
     Route: 041
  7. AMOXICILLIN. [Concomitant]
     Active Substance: AMOXICILLIN
     Indication: ANTIBIOTIC PROPHYLAXIS
     Dosage: 2 G, UNK
  8. ADRENALINE [Concomitant]
     Active Substance: EPINEPHRINE
     Dosage: UNK (0.375% BUPIVACAINE WITH ADRENALINE DELIVERED VIA THE EPIDURAL CATHETER)(10 ML IN TOTAL)
     Route: 008
  9. ADRENALINE [Concomitant]
     Active Substance: EPINEPHRINE
     Dosage: 0.15 UG/KG, UNK (INFUSION AT 0.15 ?G/KG/MIN)
     Route: 041
  10. ADRENALINE [Concomitant]
     Active Substance: EPINEPHRINE
     Dosage: UNK (BETWEEN 0.15-0.006 ?G/KG/MIN)
  11. BUPIVACAINE. [Concomitant]
     Active Substance: BUPIVACAINE
     Indication: ANALGESIC THERAPY
     Dosage: UNK (TEST DOSE OF 0.25% BUPIVACAINE WITHOUT EPINEPHRINE)
     Route: 008
  12. ADRENALINE [Concomitant]
     Active Substance: EPINEPHRINE
     Dosage: 10 UG, UNK (3 10 ?G BOLI)
     Route: 040

REACTIONS (1)
  - Anaphylactic shock [Recovered/Resolved]
